FAERS Safety Report 7672887 (Version 4)
Quarter: 2012Q4

REPORT INFORMATION
  Report Type: 
  Country: DE (occurrence: DE)
  Receive Date: 20101117
  Receipt Date: 20121017
  Transmission Date: 20130627
  Serious: Yes (Other)
  Sender: FDA-Public Use
  Company Number: DE-AMGEN-DEUSP2010000675

PATIENT
  Sex: Female

DRUGS (18)
  1. PROLIA [Suspect]
     Indication: OSTEOPOROSIS POSTMENOPAUSAL
     Dosage: 60 mg, one time dose
     Route: 058
     Dates: start: 20100813
  2. LACTULOSE STADA [Concomitant]
  3. KALINOR                            /00031402/ [Concomitant]
  4. ZINKAMIN-FALK [Concomitant]
  5. CLEXANE [Concomitant]
  6. TRYASOL CODEIN [Concomitant]
  7. TEPILTA                            /00115701/ [Concomitant]
  8. VITARENAL [Concomitant]
  9. CHOLSPASMIN [Concomitant]
  10. ANTI PHOSPHAT [Concomitant]
  11. EFFORTIL PLUS [Concomitant]
  12. BICANORM                           /00049401/ [Concomitant]
  13. SPIRONOLACTON [Concomitant]
  14. OMEPRAZOL                          /00661201/ [Concomitant]
  15. IBUPROFEN [Concomitant]
  16. NOVAMINSULFON [Concomitant]
  17. RENVELA [Concomitant]
  18. CLINDAMYCIN [Concomitant]

REACTIONS (2)
  - Blood parathyroid hormone increased [Not Recovered/Not Resolved]
  - Blood calcium decreased [Recovered/Resolved]
